FAERS Safety Report 9292528 (Version 1)
Quarter: 2013Q1

REPORT INFORMATION
  Report Type: Spontaneous
  Country: US (occurrence: None)
  Receive Date: 20121214
  Receipt Date: 20121214
  Transmission Date: 20140127
  Serious: Yes (Other)
  Sender: FDA-Public Use
  Company Number: US-JNJFOC-2007326033

PATIENT
  Age: 22 Year
  Sex: Female

DRUGS (2)
  1. SUDAFED 24 HOUR TABLETS ( PSEUDOEPHEDRINE HYDROCHLORIDE) TABLET [Suspect]
     Indication: SINUS DISORDER
     Dosage: 2 IN 1 TOTAL, ORAL
     Route: 048
     Dates: start: 20070903, end: 20070903
  2. PRIMACARE ( PRIMACARE) UNKNOWN [Concomitant]

REACTIONS (1)
  - Overdose [None]
